FAERS Safety Report 5461052-3 (Version None)
Quarter: 2007Q3

REPORT INFORMATION
  Report Type: 
  Country: None (occurrence: None)
  Receive Date: 20070820
  Receipt Date: 20070612
  Transmission Date: 20080115
  Serious: No
  Sender: FDA-Public Use
  Company Number: TPA2007A01382

PATIENT
  Age: 55 Year
  Sex: Female
  Weight: 61.2356 kg

DRUGS (1)
  1. ROZEREM [Suspect]
     Indication: SLEEP DISORDER
     Dosage: ONCE, PER ORAL
     Route: 048

REACTIONS (1)
  - FEELING ABNORMAL [None]
